FAERS Safety Report 6833321-3 (Version None)
Quarter: 2010Q3

REPORT INFORMATION
  Report Type: 
  Country: None (occurrence: None)
  Receive Date: 20100712
  Receipt Date: 20100426
  Transmission Date: 20110219
  Serious: Yes (Death, Hospitalization, Other)
  Sender: FDA-Public Use
  Company Number: PHMT2006CA01268

PATIENT
  Sex: Male

DRUGS (1)
  1. SANDOSTATIN LAR [Suspect]
     Indication: CARCINOID TUMOUR
     Dosage: 60 MG, TIW
     Route: 030
     Dates: start: 20020501, end: 20090114

REACTIONS (10)
  - DEATH [None]
  - FATIGUE [None]
  - HEMIPARESIS [None]
  - HYPOKINESIA [None]
  - MALIGNANT NEOPLASM PROGRESSION [None]
  - MENINGIOMA [None]
  - PALLIATIVE CARE [None]
  - PLASTIC SURGERY [None]
  - SKIN ATROPHY [None]
  - SURGERY [None]
